FAERS Safety Report 11528093 (Version 1)
Quarter: 2015Q3

REPORT INFORMATION
  Report Type: Spontaneous
  Country: US (occurrence: US)
  Receive Date: 20150921
  Receipt Date: 20150921
  Transmission Date: 20151125
  Serious: Yes (Other)
  Sender: FDA-Public Use
  Company Number: US-ROCHE-1634760

PATIENT
  Age: 41 Year
  Sex: Female

DRUGS (1)
  1. XOLAIR [Suspect]
     Active Substance: OMALIZUMAB
     Indication: URTICARIA
     Route: 058

REACTIONS (7)
  - Hypertension [Unknown]
  - Dizziness [Unknown]
  - Throat irritation [Unknown]
  - Chest discomfort [Unknown]
  - Tachycardia [Unknown]
  - Throat tightness [Unknown]
  - Dyspnoea [Unknown]

NARRATIVE: CASE EVENT DATE: 20150911
